FAERS Safety Report 14559819 (Version 1)
Quarter: 2018Q1

REPORT INFORMATION
  Report Type: Spontaneous
  Country: US (occurrence: US)
  Receive Date: 20180220
  Receipt Date: 20180220
  Transmission Date: 20180509
  Serious: Yes (Life-Threatening, Hospitalization, Disabling, Other)
  Sender: FDA-Public Use
  Company Number: None

PATIENT
  Age: 58 Year
  Sex: Female
  Weight: 92.25 kg

DRUGS (7)
  1. XARELTO [Suspect]
     Active Substance: RIVAROXABAN
     Indication: CEREBROVASCULAR ACCIDENT
     Route: 048
     Dates: start: 20170401, end: 20170405
  2. CARVIDEROL [Concomitant]
  3. ONE A DAY FOR OVER 50 FOR WOMEN [Concomitant]
  4. VITAMIN [Concomitant]
     Active Substance: VITAMINS
  5. LASTATIN [Concomitant]
  6. PRADAXA [Suspect]
     Active Substance: DABIGATRAN ETEXILATE MESYLATE
     Indication: CEREBROVASCULAR ACCIDENT
     Route: 048
     Dates: start: 20170401, end: 20170405
  7. ASPIRIN. [Concomitant]
     Active Substance: ASPIRIN

REACTIONS (2)
  - Cerebrovascular accident [None]
  - Cerebral haemorrhage [None]

NARRATIVE: CASE EVENT DATE: 20170401
